FAERS Safety Report 15034685 (Version 1)
Quarter: 2018Q2

REPORT INFORMATION
  Report Type: Report from Study
  Country: None (occurrence: FR)
  Receive Date: 20180620
  Receipt Date: 20180620
  Transmission Date: 20180711
  Serious: Yes (Other)
  Sender: FDA-Public Use
  Company Number: FR-ABBVIE-18K-056-2363706-00

PATIENT
  Age: 34 Year
  Sex: Male
  Weight: 83 kg

DRUGS (4)
  1. PROBIOLOG [Concomitant]
     Indication: DIARRHOEA
     Dosage: 1 CAPSULE IN THE MORNING
     Dates: start: 2010
  2. HUMIRA [Suspect]
     Active Substance: ADALIMUMAB
     Indication: CROHN^S DISEASE
     Route: 058
     Dates: start: 20180109
  3. AERIUS [Concomitant]
     Active Substance: DESLORATADINE
     Indication: PRODUCT USED FOR UNKNOWN INDICATION
  4. ALPRAZOLAM. [Concomitant]
     Active Substance: ALPRAZOLAM
     Indication: ANXIETY
     Dosage: 1 TABLET IN THE MORNING
     Route: 048
     Dates: start: 2008

REACTIONS (10)
  - Myalgia [Unknown]
  - Headache [Recovered/Resolved]
  - Loose tooth [Unknown]
  - Fatigue [Not Recovered/Not Resolved]
  - Dry skin [Not Recovered/Not Resolved]
  - Skin papilloma [Unknown]
  - Oral candidiasis [Recovered/Resolved]
  - Gastrooesophageal reflux disease [Unknown]
  - Abdominal pain [Unknown]
  - Diarrhoea [Unknown]

NARRATIVE: CASE EVENT DATE: 2018
